FAERS Safety Report 15907170 (Version 1)
Quarter: 2019Q1

REPORT INFORMATION
  Report Type: Spontaneous
  Country: US (occurrence: US)
  Receive Date: 20190204
  Receipt Date: 20190204
  Transmission Date: 20190417
  Serious: No
  Sender: FDA-Public Use
  Company Number: US-PFIZER INC-2019046728

PATIENT
  Age: 81 Year
  Sex: Female
  Weight: 65.76 kg

DRUGS (1)
  1. LIPITOR [Suspect]
     Active Substance: ATORVASTATIN CALCIUM
     Indication: BLOOD CHOLESTEROL INCREASED
     Dosage: 1 DF, 1X/DAY (1 TABLET AT NIGHT)
     Route: 048

REACTIONS (2)
  - Liver function test increased [Unknown]
  - Nausea [Unknown]
